FAERS Safety Report 21309233 (Version 1)
Quarter: 2022Q3

REPORT INFORMATION
  Report Type: Spontaneous
  Country: EC (occurrence: EC)
  Receive Date: 20220908
  Receipt Date: 20220908
  Transmission Date: 20221027
  Serious: Yes (Other)
  Sender: FDA-Public Use
  Company Number: EC-009507513-2209ECU001400

PATIENT
  Age: 80 Year
  Sex: Male

DRUGS (1)
  1. KEYTRUDA [Suspect]
     Active Substance: PEMBROLIZUMAB
     Indication: Renal cancer
     Dosage: 15 CYCLES

REACTIONS (6)
  - Renal failure [Unknown]
  - Toxicity to various agents [Unknown]
  - Dysphagia [Unknown]
  - Hypophysitis [Unknown]
  - Hyponatraemia [Unknown]
  - Pyrexia [Unknown]
